FAERS Safety Report 8267554-9 (Version None)
Quarter: 2012Q2

REPORT INFORMATION
  Report Type: 
  Country: None (occurrence: None)
  Receive Date: 20120409
  Receipt Date: 20120404
  Transmission Date: 20120825
  Serious: Yes (Other)
  Sender: FDA-Public Use
  Company Number: GB-JNJFOC-20120402675

PATIENT
  Sex: Male

DRUGS (2)
  1. REGAINE MEN'S REGULAR STRENGTH 2% [Suspect]
     Dosage: SIX SPRAYS
     Route: 061
  2. REGAINE MEN'S REGULAR STRENGTH 2% [Suspect]
     Indication: PRODUCT USED FOR UNKNOWN INDICATION
     Route: 061

REACTIONS (7)
  - INSOMNIA [None]
  - UNDERDOSE [None]
  - ALOPECIA [None]
  - DEPRESSION [None]
  - HEADACHE [None]
  - FEELING ABNORMAL [None]
  - FATIGUE [None]
